FAERS Safety Report 5453224-9 (Version None)
Quarter: 2007Q3

REPORT INFORMATION
  Report Type: 
  Country: None (occurrence: None)
  Receive Date: 20070914
  Receipt Date: 20070905
  Transmission Date: 20080115
  Serious: Yes (Other)
  Sender: FDA-Public Use
  Company Number: GB-PFIZER INC-2007074807

PATIENT
  Sex: Male

DRUGS (6)
  1. CHAMPIX [Suspect]
     Indication: SMOKING CESSATION THERAPY
     Route: 048
  2. LUSTRAL [Suspect]
     Route: 048
  3. CARBAMAZEPINE [Concomitant]
  4. PHENYTOIN [Concomitant]
  5. VITAMIN B [Concomitant]
  6. CETIRIZINE HCL [Concomitant]

REACTIONS (7)
  - ASTHENIA [None]
  - DEPRESSION [None]
  - GINGIVAL PAIN [None]
  - PRURITUS [None]
  - RASH [None]
  - RASH MACULAR [None]
  - SCRATCH [None]
